FAERS Safety Report 6844943-8 (Version None)
Quarter: 2010Q3

REPORT INFORMATION
  Report Type: 
  Country: None (occurrence: None)
  Receive Date: 20100715
  Receipt Date: 20100709
  Transmission Date: 20110219
  Serious: Yes (Death, Hospitalization, Other)
  Sender: FDA-Public Use
  Company Number: US-AMGEN-QUU409867

PATIENT
  Sex: Female
  Weight: 80.4 kg

DRUGS (3)
  1. NPLATE [Suspect]
     Indication: IDIOPATHIC THROMBOCYTOPENIC PURPURA
     Dates: start: 20091109, end: 20091119
  2. CORTICOSTEROIDS [Concomitant]
  3. DEXAMETHASONE [Concomitant]

REACTIONS (3)
  - DEATH [None]
  - EMBOLISM ARTERIAL [None]
  - HOSPITALISATION [None]
